FAERS Safety Report 4417798-9 (Version None)
Quarter: 2004Q3

REPORT INFORMATION
  Report Type: 
  Country: None (occurrence: None)
  Receive Date: 20040803
  Receipt Date: 20040721
  Transmission Date: 20050211
  Serious: Yes (Hospitalization)
  Sender: FDA-Public Use
  Company Number: 2003171332GB

PATIENT
  Age: 45 Year
  Sex: Female

DRUGS (9)
  1. DOXORUBICIN HCL [Suspect]
     Indication: BREAST CANCER METASTATIC
     Dosage: 50 MG/M2, TWO CYCLES,
  2. NEOCEL (DOCETAXEL) SOLUTION, STERILE [Suspect]
     Indication: BREAST CANCER METASTATIC
     Dosage: 75 MG/M2, TWO CYCLES,
  3. ERYTHROCIN [Suspect]
     Indication: PROPHYLAXIS
  4. LOMEPRAL (OMEPRAZOLE) CAPSULE [Suspect]
  5. GRANISETRON (GRANISETRON) [Concomitant]
  6. DEXAMETHASONE [Concomitant]
  7. MORPHINE SULFATE [Concomitant]
  8. IBUPROFEN [Concomitant]
  9. METOCLOPRAMIDE [Concomitant]

REACTIONS (19)
  - ABDOMINAL DISTENSION [None]
  - ABDOMINAL PAIN [None]
  - BLOOD ALBUMIN DECREASED [None]
  - BLOOD ALKALINE PHOSPHATASE INCREASED [None]
  - BLOOD BILIRUBIN INCREASED [None]
  - CLOSTRIDIUM COLITIS [None]
  - DIARRHOEA HAEMORRHAGIC [None]
  - DRUG INTERACTION [None]
  - FEBRILE NEUTROPENIA [None]
  - GALLBLADDER DISORDER [None]
  - GAMMA-GLUTAMYLTRANSFERASE INCREASED [None]
  - HAEMATEMESIS [None]
  - HAEMODYNAMIC INSTABILITY [None]
  - JAUNDICE CHOLESTATIC [None]
  - METASTASES TO CENTRAL NERVOUS SYSTEM [None]
  - MOUTH ULCERATION [None]
  - RASH MACULO-PAPULAR [None]
  - THERAPY NON-RESPONDER [None]
  - VOMITING [None]
